FAERS Safety Report 5722333-9 (Version None)
Quarter: 2008Q2

REPORT INFORMATION
  Report Type: 
  Country: None (occurrence: None)
  Receive Date: 20080429
  Receipt Date: 20071030
  Transmission Date: 20081010
  Serious: No
  Sender: FDA-Public Use
  Company Number: US-ASTRAZENECA-2007UW25173

PATIENT
  Age: 40 Year
  Sex: Male
  Weight: 102.5 kg

DRUGS (3)
  1. NEXIUM [Suspect]
     Indication: REFLUX OESOPHAGITIS
     Route: 048
  2. ANTI-ANXIETY MEDICATON [Concomitant]
  3. ALLEGRA [Concomitant]

REACTIONS (4)
  - DRUG INEFFECTIVE [None]
  - DRY MOUTH [None]
  - ILL-DEFINED DISORDER [None]
  - WEIGHT DECREASED [None]
